FAERS Safety Report 4300639-8 (Version None)
Quarter: 2004Q1

REPORT INFORMATION
  Report Type: 
  Country: None (occurrence: None)
  Receive Date: 20040211
  Receipt Date: 20040127
  Transmission Date: 20041129
  Serious: Yes (Hospitalization)
  Sender: FDA-Public Use
  Company Number: 601005

PATIENT
  Age: 3 Year
  Sex: Male
  Weight: 18 kg

DRUGS (3)
  1. RECOMBINATE [Suspect]
     Indication: FACTOR VIII DEFICIENCY
     Dosage: 1010 UNITS; TIW; INTRAVENOUS
     Route: 042
     Dates: start: 20031104, end: 20031104
  2. HEPARIN [Suspect]
     Indication: INTRAVENOUS CATHETER MANAGEMENT
     Dosage: 500 UNITS; ONCE; INTRAVENOUS
     Route: 042
     Dates: start: 20031104, end: 20031104
  3. SODIUM CHLORIDE 0.9% [Suspect]
     Indication: INTRAVENOUS CATHETER MANAGEMENT
     Dosage: 20 CC; ONCE; INTRAVENOUS
     Route: 042
     Dates: start: 20031104, end: 20031104

REACTIONS (9)
  - CATHETER RELATED INFECTION [None]
  - DEPRESSED LEVEL OF CONSCIOUSNESS [None]
  - DYSPNOEA [None]
  - ENTEROBACTER INFECTION [None]
  - LIVEDO RETICULARIS [None]
  - PHARMACEUTICAL PRODUCT COMPLAINT [None]
  - PYREXIA [None]
  - SEPSIS [None]
  - SKIN DISCOLOURATION [None]
